FAERS Safety Report 4352277-9 (Version None)
Quarter: 2004Q2

REPORT INFORMATION
  Report Type: 
  Country: None (occurrence: None)
  Receive Date: 20040416
  Receipt Date: 20040217
  Transmission Date: 20050107
  Serious: Yes (Hospitalization)
  Sender: FDA-Public Use
  Company Number: 2004-BP-01180BP

PATIENT
  Age: 56 Year
  Sex: Male

DRUGS (2)
  1. FLOMAX [Suspect]
     Indication: BENIGN PROSTATIC HYPERPLASIA
     Dosage: 0.4 MG (0.4 MG, 1 QD) PO
     Route: 048
     Dates: start: 20030101, end: 20040101
  2. VITAMINS (VITAMINS) [Concomitant]

REACTIONS (1)
  - CHEST PAIN [None]
